FAERS Safety Report 25052355 (Version 9)
Quarter: 2025Q2

REPORT INFORMATION
  Report Type: Spontaneous
  Country: AT (occurrence: AT)
  Receive Date: 20250307
  Receipt Date: 20250618
  Transmission Date: 20250717
  Serious: Yes (Hospitalization, Other)
  Sender: NOVARTIS
  Company Number: AT-002147023-NVSC2025AT038539

PATIENT
  Age: 66 Year
  Sex: Female
  Weight: 80.4 kg

DRUGS (273)
  1. LAPATINIB [Suspect]
     Active Substance: LAPATINIB
     Indication: Breast cancer
     Dosage: 1250 MG, QD, MOST RECENT DOSE PRIOR TO THE EVENT LYMPH NODE METASTATIS AXILLA AND PORT A CATH INFECT
     Route: 048
     Dates: start: 20191002, end: 20200107
  2. LAPATINIB [Suspect]
     Active Substance: LAPATINIB
     Dosage: 1000 MG, QD
     Route: 065
     Dates: start: 20200108, end: 20200421
  3. VINORELBINE [Suspect]
     Active Substance: VINORELBINE TARTRATE
     Indication: HER2 positive breast cancer
     Dosage: 45 MG, Q3W
     Route: 042
     Dates: start: 20200422, end: 20200722
  4. FULVESTRANT [Suspect]
     Active Substance: FULVESTRANT
     Indication: Breast cancer metastatic
     Dosage: 500 MG, QW ((MOST RECENT DOSE PRIOR TO THE EVENT LYMPH NODE METASTATIS AXILLA AND PORT A CATH INFECT
     Route: 030
     Dates: start: 20171002, end: 20171115
  5. FULVESTRANT [Suspect]
     Active Substance: FULVESTRANT
     Dosage: 500 MG, QW
     Route: 030
     Dates: start: 20171116, end: 20191001
  6. DOCETAXEL [Suspect]
     Active Substance: DOCETAXEL
     Indication: Breast cancer metastatic
     Dosage: 570 MG, Q3W (MOST RECENT DOSE PRIOR TO THE EVENTS: 09 JUN 2017)
     Route: 042
     Dates: start: 20170224, end: 20170317
  7. DOCETAXEL [Suspect]
     Active Substance: DOCETAXEL
     Indication: Breast cancer metastatic
     Dosage: 190 MG, Q3W (MOST RECENT DOSE PRIOR TO THE EVENTS: 09/JUN/2017)
     Route: 042
     Dates: start: 20170224, end: 20170317
  8. DOCETAXEL [Suspect]
     Active Substance: DOCETAXEL
     Dosage: 180 MG, Q3W
     Route: 042
     Dates: start: 20170609, end: 20170630
  9. DOCETAXEL [Suspect]
     Active Substance: DOCETAXEL
     Dosage: 549 MG, QW
     Route: 042
     Dates: start: 20170519, end: 20170519
  10. DOCETAXEL [Suspect]
     Active Substance: DOCETAXEL
     Route: 042
     Dates: start: 20210317, end: 20210428
  11. DOCETAXEL [Suspect]
     Active Substance: DOCETAXEL
     Dosage: 525 MG, QW
     Route: 065
     Dates: start: 20170410, end: 20170427
  12. DOCETAXEL [Suspect]
     Active Substance: DOCETAXEL
     Dosage: 134.25 MG, Q3W
     Route: 042
     Dates: start: 20210317, end: 20210428
  13. DOCETAXEL [Suspect]
     Active Substance: DOCETAXEL
     Dosage: 183 MG, QD (183 UNK)
     Route: 042
     Dates: start: 20170519, end: 20170519
  14. DOCETAXEL [Suspect]
     Active Substance: DOCETAXEL
     Route: 065
  15. DOCETAXEL [Suspect]
     Active Substance: DOCETAXEL
     Route: 065
     Dates: start: 20170410, end: 20170427
  16. DOCETAXEL [Suspect]
     Active Substance: DOCETAXEL
     Dosage: 540 MG, QW
     Route: 042
     Dates: start: 20170609, end: 20170630
  17. DOCETAXEL [Suspect]
     Active Substance: DOCETAXEL
     Route: 065
     Dates: start: 20170519, end: 20170519
  18. DOCETAXEL [Suspect]
     Active Substance: DOCETAXEL
     Route: 065
     Dates: start: 20170519, end: 20170519
  19. DOCETAXEL [Suspect]
     Active Substance: DOCETAXEL
     Route: 042
     Dates: start: 20210317, end: 20210428
  20. CAPECITABINE [Suspect]
     Active Substance: CAPECITABINE
     Indication: Breast cancer metastatic
     Dosage: 3500 MG, QD ECENT DOSE PRIOR TO THE EVENT LYMPH NODE METASTATIS AXILLA AND PORT A CATH INFECTION: 08
     Route: 048
     Dates: start: 20191002, end: 20200107
  21. CAPECITABINE [Suspect]
     Active Substance: CAPECITABINE
     Dosage: 300 MG, QD
     Route: 048
     Dates: start: 20200108
  22. CAPECITABINE [Suspect]
     Active Substance: CAPECITABINE
     Route: 048
     Dates: start: 20201230, end: 20210203
  23. CAPECITABINE [Suspect]
     Active Substance: CAPECITABINE
     Route: 048
     Dates: start: 20210210, end: 20210224
  24. CAPECITABINE [Suspect]
     Active Substance: CAPECITABINE
     Route: 065
  25. TYKERB [Suspect]
     Active Substance: LAPATINIB DITOSYLATE
     Indication: Breast cancer metastatic
     Dosage: 1250 MG, QD (MOST RECENT DOSE PRIOR TO THE EVENT LYMPH NODE METASTATIS AXILLA AND PORT A CATH INFECT
     Route: 048
     Dates: start: 20191002, end: 20200107
  26. TYKERB [Suspect]
     Active Substance: LAPATINIB DITOSYLATE
     Indication: Breast cancer metastatic
     Dosage: 1000 MG, QD
     Route: 048
     Dates: start: 20200108, end: 20200421
  27. DOXORUBICIN [Suspect]
     Active Substance: DOXORUBICIN
     Indication: Breast cancer metastatic
     Dosage: 104.4 MG, QD
     Route: 042
     Dates: start: 20210608, end: 20210608
  28. ACETAMINOPHEN [Suspect]
     Active Substance: ACETAMINOPHEN
     Indication: Pseudomonal sepsis
     Route: 065
     Dates: start: 20200506, end: 20210622
  29. ACETAMINOPHEN [Suspect]
     Active Substance: ACETAMINOPHEN
     Route: 065
     Dates: start: 20200506
  30. BLEOMYCIN SULFATE [Suspect]
     Active Substance: BLEOMYCIN SULFATE
     Indication: Breast cancer metastatic
     Dosage: 26.85 MG, QD
     Route: 042
     Dates: start: 20200519, end: 20200519
  31. BLEOMYCIN SULFATE [Suspect]
     Active Substance: BLEOMYCIN SULFATE
     Dosage: 26.85 MG, QD
     Route: 042
     Dates: start: 20210105, end: 20210105
  32. BLEOMYCIN SULFATE [Suspect]
     Active Substance: BLEOMYCIN SULFATE
     Route: 065
  33. FAM-TRASTUZUMAB DERUXTECAN-NXKI [Suspect]
     Active Substance: FAM-TRASTUZUMAB DERUXTECAN-NXKI
     Indication: Breast cancer metastatic
     Route: 058
     Dates: start: 20200814, end: 20201015
  34. ADO-TRASTUZUMAB EMTANSINE [Suspect]
     Active Substance: ADO-TRASTUZUMAB EMTANSINE
     Indication: Breast cancer metastatic
     Dosage: MOST RECENT DOSE RECEIVED ON 810MG START DATE: 06/03/2019; END DATE: 09/09/2019,
     Route: 042
     Dates: start: 20190306, end: 20190909
  35. ADO-TRASTUZUMAB EMTANSINE [Suspect]
     Active Substance: ADO-TRASTUZUMAB EMTANSINE
     Indication: Breast cancer metastatic
  36. TRASTUZUMAB [Suspect]
     Active Substance: TRASTUZUMAB
     Indication: Breast cancer metastatic
     Dosage: 624 MILLIGRAM, QD/ MOST RECENT DOSE PRIOR TO THE EVENTS: 10/AUG/2017
     Route: 042
     Dates: start: 20170224, end: 20170224
  37. TRASTUZUMAB [Suspect]
     Active Substance: TRASTUZUMAB
     Indication: Breast cancer metastatic
     Route: 042
     Dates: start: 20170720, end: 20170720
  38. TRASTUZUMAB [Suspect]
     Active Substance: TRASTUZUMAB
     Dosage: 369 MG, TIW
     Route: 042
     Dates: start: 20170410, end: 20170427
  39. TRASTUZUMAB [Suspect]
     Active Substance: TRASTUZUMAB
     Dosage: 560 MG, Q3W
     Route: 042
     Dates: start: 20201230, end: 20210210
  40. TRASTUZUMAB [Suspect]
     Active Substance: TRASTUZUMAB
     Dosage: 432 MG, QD
     Route: 042
     Dates: start: 20170519, end: 20170519
  41. TRASTUZUMAB [Suspect]
     Active Substance: TRASTUZUMAB
     Dosage: 462 MG, Q3W
     Route: 042
     Dates: start: 20170810, end: 20190213
  42. TRASTUZUMAB [Suspect]
     Active Substance: TRASTUZUMAB
     Dosage: 414 MG, QD
     Route: 042
     Dates: start: 20170224, end: 20170630
  43. TRASTUZUMAB [Suspect]
     Active Substance: TRASTUZUMAB
     Dosage: 540 MG, Q3W
     Route: 042
     Dates: start: 20200422, end: 20200615
  44. TRASTUZUMAB [Suspect]
     Active Substance: TRASTUZUMAB
     Dosage: 468 MG QD
     Route: 042
     Dates: start: 20170720, end: 20170720
  45. TRASTUZUMAB [Suspect]
     Active Substance: TRASTUZUMAB
     Dosage: 408 MG, Q3W
     Route: 042
     Dates: start: 20210317, end: 20210428
  46. TRASTUZUMAB [Suspect]
     Active Substance: TRASTUZUMAB
     Route: 065
     Dates: start: 20200814, end: 20201015
  47. TRASTUZUMAB [Suspect]
     Active Substance: TRASTUZUMAB
     Dosage: 468 MG, QD
     Route: 065
     Dates: start: 20200317, end: 20200317
  48. TRASTUZUMAB [Suspect]
     Active Substance: TRASTUZUMAB
     Dosage: 414 MG, Q3W
     Route: 042
     Dates: start: 20170609, end: 20170630
  49. TRASTUZUMAB [Suspect]
     Active Substance: TRASTUZUMAB
     Dosage: 1242 MG, TIW
     Route: 042
     Dates: start: 20170609, end: 20170630
  50. TRASTUZUMAB [Suspect]
     Active Substance: TRASTUZUMAB
     Dosage: 1386 MG, TIW
     Route: 042
     Dates: start: 20170810, end: 20190213
  51. TRASTUZUMAB [Suspect]
     Active Substance: TRASTUZUMAB
     Dosage: 1526 MG, TIW
     Route: 042
     Dates: start: 20200422, end: 20200615
  52. TRASTUZUMAB [Suspect]
     Active Substance: TRASTUZUMAB
     Dosage: 1680 MG, TIW
     Route: 042
     Dates: start: 20201230, end: 20210210
  53. TRASTUZUMAB [Suspect]
     Active Substance: TRASTUZUMAB
     Dosage: 462 MG, TIW
     Route: 042
  54. TRASTUZUMAB [Suspect]
     Active Substance: TRASTUZUMAB
     Dosage: 432 MG, QD
     Route: 042
  55. TRASTUZUMAB [Suspect]
     Active Substance: TRASTUZUMAB
     Dosage: 414 MG, TIW
     Route: 042
  56. TRASTUZUMAB [Suspect]
     Active Substance: TRASTUZUMAB
     Dosage: 408 MG, TIW
     Route: 042
  57. TRASTUZUMAB [Suspect]
     Active Substance: TRASTUZUMAB
     Route: 042
  58. TRASTUZUMAB [Suspect]
     Active Substance: TRASTUZUMAB
     Dosage: 390 MG
     Route: 042
     Dates: start: 20170410, end: 20170427
  59. TRASTUZUMAB [Suspect]
     Active Substance: TRASTUZUMAB
     Dosage: 624 MG, EVERY 1 DAY
     Route: 065
     Dates: start: 20170224
  60. TRASTUZUMAB [Suspect]
     Active Substance: TRASTUZUMAB
     Dosage: 468 MG/KG, QD
     Route: 065
     Dates: start: 20200317, end: 20200317
  61. TRASTUZUMAB [Suspect]
     Active Substance: TRASTUZUMAB
     Route: 042
     Dates: start: 20170410, end: 20170427
  62. TRASTUZUMAB [Suspect]
     Active Substance: TRASTUZUMAB
     Dosage: 462.000MG Q3W
     Route: 042
     Dates: start: 20170810, end: 20190213
  63. TRASTUZUMAB [Suspect]
     Active Substance: TRASTUZUMAB
     Dosage: 624.000MG QD
     Route: 042
     Dates: start: 20170224, end: 20170224
  64. TRASTUZUMAB [Suspect]
     Active Substance: TRASTUZUMAB
     Dosage: 432.000MG QD
     Route: 042
     Dates: start: 20170519, end: 20170519
  65. TRASTUZUMAB [Suspect]
     Active Substance: TRASTUZUMAB
     Dosage: 540.000MG Q3W
     Route: 042
     Dates: start: 20200422, end: 20200615
  66. TRASTUZUMAB [Suspect]
     Active Substance: TRASTUZUMAB
     Dosage: 560.000MG Q3W
     Route: 042
     Dates: start: 20201230, end: 20210210
  67. TRASTUZUMAB [Suspect]
     Active Substance: TRASTUZUMAB
     Dosage: 414.000MG Q3W
     Route: 042
     Dates: start: 20170609, end: 20170630
  68. TRASTUZUMAB [Suspect]
     Active Substance: TRASTUZUMAB
     Dosage: 408.000MG Q3W
     Route: 042
     Dates: start: 20210317, end: 20210428
  69. TRASTUZUMAB [Suspect]
     Active Substance: TRASTUZUMAB
     Dosage: 468.000MG QD
     Route: 042
     Dates: start: 20170720, end: 20170720
  70. TRASTUZUMAB [Suspect]
     Active Substance: TRASTUZUMAB
     Route: 042
     Dates: start: 20200422, end: 20200615
  71. BLEOMYCIN [Suspect]
     Active Substance: BLEOMYCIN SULFATE
     Indication: Breast cancer metastatic
     Dosage: START DATE: 05/01/2021; END DATE: 05/01/2021, START DATE: 19/05/2020; END DATE: 19/05/2020
     Route: 042
     Dates: start: 20200519, end: 20200519
  72. BLEOMYCIN [Suspect]
     Active Substance: BLEOMYCIN SULFATE
     Indication: Breast cancer metastatic
     Dosage: 26.85 MILLIGRAM, QD
     Route: 042
     Dates: start: 20210105, end: 20210105
  73. BLEOMYCIN [Suspect]
     Active Substance: BLEOMYCIN SULFATE
     Indication: Breast cancer metastatic
     Dosage: 26.85 MG, QD
     Route: 042
  74. XELODA [Suspect]
     Active Substance: CAPECITABINE
     Indication: Breast cancer metastatic
     Dosage: 3500 MG, QD (MOST RECENT DOSE EVENT PORT A CATH INFECTION:  PRIOR TO THE 08/JAN/2020)
     Route: 048
     Dates: start: 20191002, end: 20200107
  75. XELODA [Suspect]
     Active Substance: CAPECITABINE
     Indication: Breast cancer metastatic
     Dosage: 3000 MILLIGRAM, QD
     Route: 048
     Dates: start: 20200108, end: 20200421
  76. XELODA [Suspect]
     Active Substance: CAPECITABINE
     Indication: Breast cancer metastatic
     Dosage: 3500 MILLIGRAM, QD
     Route: 048
     Dates: start: 20210210, end: 20210224
  77. XELODA [Suspect]
     Active Substance: CAPECITABINE
     Dosage: DAILY FOR 2 WEEKS THEN PAUSE FOR 1 WEEK
     Route: 048
     Dates: start: 20201230, end: 20210203
  78. PERTUZUMAB [Suspect]
     Active Substance: PERTUZUMAB
     Indication: Breast cancer metastatic
     Dosage: MOST RECENT DOSE PRIOR TO THE EVENT WORSENING OF BRAIN METASTASES: 17/MAR/2017 MOST RECENT DOSE PRIO
     Route: 042
     Dates: start: 20170224, end: 20170224
  79. PERTUZUMAB [Suspect]
     Active Substance: PERTUZUMAB
     Indication: HER2 positive breast cancer
     Dosage: 840 MG, QD
     Route: 042
     Dates: start: 20170417, end: 20210428
  80. PERTUZUMAB [Suspect]
     Active Substance: PERTUZUMAB
     Indication: HER2 positive breast cancer
     Dosage: 840 MG, QD
     Route: 042
     Dates: start: 20200422, end: 20200615
  81. PERTUZUMAB [Suspect]
     Active Substance: PERTUZUMAB
     Indication: Breast cancer metastatic
     Dosage: 420 MG, QD
     Route: 042
     Dates: start: 20170317, end: 20190213
  82. PERTUZUMAB [Suspect]
     Active Substance: PERTUZUMAB
     Dosage: 840 MG, QD
     Route: 042
     Dates: start: 20210317, end: 20210428
  83. PERTUZUMAB [Suspect]
     Active Substance: PERTUZUMAB
     Dosage: 840 MG, QD
     Route: 065
     Dates: start: 20170214, end: 20210428
  84. NAVELBINE [Suspect]
     Active Substance: VINORELBINE TARTRATE
     Indication: Breast cancer metastatic
     Dosage: 135 MG, QW (45.000MG TIW)
     Route: 042
     Dates: start: 20200422, end: 20200722
  85. NAVELBINE [Suspect]
     Active Substance: VINORELBINE TARTRATE
     Indication: Breast cancer metastatic
     Dosage: START DATE: 22/04/2020; END DATE: 22/07/2020
     Route: 042
     Dates: start: 20200422, end: 20200722
  86. NAVELBINE [Suspect]
     Active Substance: VINORELBINE TARTRATE
     Dosage: 45 MG, Q3W
     Route: 042
     Dates: start: 20200722, end: 20200722
  87. DENOSUMAB [Suspect]
     Active Substance: DENOSUMAB
     Indication: Breast cancer metastatic
     Dosage: 120 MG, Q4W
     Route: 042
     Dates: start: 20201230, end: 20210210
  88. DENOSUMAB [Suspect]
     Active Substance: DENOSUMAB
     Indication: Breast cancer metastatic
     Dosage: 120 MG, ONCE EVERY 4 WK
     Route: 042
     Dates: start: 20170202
  89. DENOSUMAB [Suspect]
     Active Substance: DENOSUMAB
     Indication: Breast cancer metastatic
     Dosage: 120 MG, ONCE EVERY 4 WK
     Route: 042
     Dates: end: 20170210
  90. TUCATINIB [Suspect]
     Active Substance: TUCATINIB
     Indication: Breast cancer metastatic
     Dosage: 300 MILLIGRAM, UNK
     Route: 048
     Dates: start: 20201230, end: 20210210
  91. TUCATINIB [Suspect]
     Active Substance: TUCATINIB
     Indication: Breast cancer metastatic
  92. TUCATINIB [Suspect]
     Active Substance: TUCATINIB
     Indication: Breast cancer metastatic
  93. TUCATINIB [Suspect]
     Active Substance: TUCATINIB
     Indication: Breast cancer metastatic
  94. PEGFILGRASTIM [Suspect]
     Active Substance: PEGFILGRASTIM
     Indication: Product used for unknown indication
     Route: 065
     Dates: start: 20210610, end: 20210610
  95. KADCYLA [Suspect]
     Active Substance: ADO-TRASTUZUMAB EMTANSINE
     Indication: Breast cancer metastatic
     Dosage: 270 MILLIGRAM, Q3W
     Route: 042
     Dates: start: 20190306, end: 20190909
  96. KADCYLA [Suspect]
     Active Substance: ADO-TRASTUZUMAB EMTANSINE
     Indication: HER2 positive breast cancer
     Dosage: 190 MG, Q3W (190 MILLIGRAM, Q3WK MOSTRECENT DOSE PRIOR TO THE EVENTS: 09/JUN/2017)
     Route: 042
     Dates: start: 20170224, end: 20170317
  97. KADCYLA [Suspect]
     Active Substance: ADO-TRASTUZUMAB EMTANSINE
     Dosage: 370 MG, QD
     Route: 042
     Dates: start: 20170519, end: 20170519
  98. FASLODEX [Suspect]
     Active Substance: FULVESTRANT
     Indication: Breast cancer
     Dosage: MOST RECENT DOSE PRIOR TO THE EVENT LYMPH NODE METASTATIS AXILLA AND PORT A CATH INFECTION: 16/NOV/2
     Route: 058
     Dates: start: 20171002, end: 20171115
  99. FASLODEX [Suspect]
     Active Substance: FULVESTRANT
     Indication: Breast cancer metastatic
     Dosage: START DATE: 16/11/2017; END DATE: 01/10/2019
     Route: 058
     Dates: start: 20171116, end: 20191001
  100. FASLODEX [Suspect]
     Active Substance: FULVESTRANT
     Indication: Breast cancer metastatic
  101. PERJETA [Suspect]
     Active Substance: PERTUZUMAB
     Indication: Breast cancer metastatic
     Dosage: 840 MG, QD
     Route: 042
     Dates: start: 20170224, end: 20170224
  102. PERJETA [Suspect]
     Active Substance: PERTUZUMAB
     Indication: Breast cancer metastatic
     Dosage: 840 MG, QD
     Route: 042
     Dates: start: 20200422, end: 20200615
  103. PERJETA [Suspect]
     Active Substance: PERTUZUMAB
     Dosage: 840 MG, QD
     Route: 042
     Dates: start: 20210317, end: 20210428
  104. DOXIL [Suspect]
     Active Substance: DOXORUBICIN HYDROCHLORIDE
     Indication: Breast cancer metastatic
     Dosage: 104.4 MILLIGRAM, QD
     Route: 042
     Dates: start: 20210608, end: 20210608
  105. DOXIL [Suspect]
     Active Substance: DOXORUBICIN HYDROCHLORIDE
     Indication: HER2 positive breast cancer
  106. ADRIACIN [Suspect]
     Active Substance: DOXORUBICIN HYDROCHLORIDE
     Indication: Breast cancer metastatic
     Dosage: 104.4 MG, QD
     Route: 065
     Dates: start: 20210608, end: 20210608
  107. ENHERTU [Suspect]
     Active Substance: FAM-TRASTUZUMAB DERUXTECAN-NXKI
     Indication: Breast cancer metastatic
     Dosage: 624 MG, QD (MOST RECENT DOSE PRIOR TO THE EVENTS: 10/AUG/2017 )
     Route: 065
     Dates: start: 20200814, end: 20201015
  108. XGEVA [Suspect]
     Active Substance: DENOSUMAB
     Indication: Product used for unknown indication
     Route: 065
  109. XGEVA [Suspect]
     Active Substance: DENOSUMAB
     Dosage: 120 MG, Q4W
     Route: 042
     Dates: start: 20201230, end: 20210210
  110. XGEVA [Suspect]
     Active Substance: DENOSUMAB
     Dosage: 120 MG, Q4W
     Route: 042
     Dates: start: 20170202, end: 20210521
  111. CARBOXYMETHYLCELLULOSE SODIUM [Suspect]
     Active Substance: CARBOXYMETHYLCELLULOSE SODIUM
     Indication: Product used for unknown indication
     Route: 065
  112. Paspertin [Concomitant]
     Indication: Product used for unknown indication
     Route: 065
     Dates: start: 20200506, end: 20201212
  113. Paspertin [Concomitant]
     Indication: Gastrointestinal disorder
     Route: 065
     Dates: start: 20210608, end: 20210610
  114. Paspertin [Concomitant]
     Route: 065
     Dates: start: 20210611, end: 20210623
  115. ZOFRAN [Concomitant]
     Active Substance: ONDANSETRON HYDROCHLORIDE
     Indication: Gastrointestinal disorder
     Route: 048
     Dates: start: 20170329, end: 20170809
  116. ZOFRAN [Concomitant]
     Active Substance: ONDANSETRON HYDROCHLORIDE
     Indication: Product used for unknown indication
     Route: 065
     Dates: start: 20210611, end: 20210612
  117. ZOFRAN [Concomitant]
     Active Substance: ONDANSETRON HYDROCHLORIDE
     Route: 065
     Dates: start: 20210612, end: 20210616
  118. ZOFRAN [Concomitant]
     Active Substance: ONDANSETRON HYDROCHLORIDE
     Route: 065
     Dates: start: 20200506, end: 20200519
  119. ZOFRAN [Concomitant]
     Active Substance: ONDANSETRON HYDROCHLORIDE
     Route: 065
     Dates: start: 20210608, end: 20210610
  120. ZOFRAN [Concomitant]
     Active Substance: ONDANSETRON HYDROCHLORIDE
     Route: 065
     Dates: start: 20210611, end: 20210616
  121. MORPHINE [Concomitant]
     Active Substance: MORPHINE
     Indication: Dyspnoea
     Route: 065
     Dates: start: 20210521, end: 20210616
  122. MORPHINE [Concomitant]
     Active Substance: MORPHINE
     Indication: Dyspnoea
     Route: 065
     Dates: start: 20210616, end: 20210623
  123. Motrim [Concomitant]
     Indication: Product used for unknown indication
     Route: 048
     Dates: start: 20190619, end: 20190623
  124. KCL [Concomitant]
     Active Substance: POTASSIUM CHLORIDE
     Indication: Product used for unknown indication
     Route: 065
     Dates: start: 20170429
  125. KCL [Concomitant]
     Active Substance: POTASSIUM CHLORIDE
     Route: 048
     Dates: start: 20170429, end: 20190305
  126. ACETAMINOPHEN [Concomitant]
     Active Substance: ACETAMINOPHEN
     Indication: Pseudomonal sepsis
     Route: 065
     Dates: start: 20200506
  127. ACETAMINOPHEN [Concomitant]
     Active Substance: ACETAMINOPHEN
     Route: 065
     Dates: start: 20200506, end: 20201215
  128. ACETAMINOPHEN [Concomitant]
     Active Substance: ACETAMINOPHEN
     Route: 065
     Dates: start: 20210622, end: 20210622
  129. ACETAMINOPHEN [Concomitant]
     Active Substance: ACETAMINOPHEN
     Route: 065
     Dates: start: 20200506, end: 20210622
  130. ACETAMINOPHEN [Concomitant]
     Active Substance: ACETAMINOPHEN
     Route: 065
     Dates: end: 20210622
  131. FUROSEMIDE [Concomitant]
     Active Substance: FUROSEMIDE
     Indication: Product used for unknown indication
     Route: 065
     Dates: start: 20170810, end: 20171213
  132. EDOXABAN TOSYLATE [Concomitant]
     Active Substance: EDOXABAN TOSYLATE
     Indication: Product used for unknown indication
     Route: 065
     Dates: start: 20191120, end: 20200608
  133. EDOXABAN TOSYLATE [Concomitant]
     Active Substance: EDOXABAN TOSYLATE
     Route: 065
     Dates: start: 20200613, end: 20210611
  134. EDOXABAN TOSYLATE [Concomitant]
     Active Substance: EDOXABAN TOSYLATE
     Route: 065
     Dates: start: 20200613, end: 20210611
  135. PREGABALIN [Concomitant]
     Active Substance: PREGABALIN
     Indication: Product used for unknown indication
     Route: 065
     Dates: start: 20190821
  136. PREGABALIN [Concomitant]
     Active Substance: PREGABALIN
     Indication: Product used for unknown indication
     Route: 065
     Dates: start: 20190821, end: 20210616
  137. PREGABALIN [Concomitant]
     Active Substance: PREGABALIN
     Route: 065
     Dates: start: 20190821, end: 20210616
  138. PREGABALIN [Concomitant]
     Active Substance: PREGABALIN
     Dosage: 25 MG, QD
     Route: 065
     Dates: start: 20170428, end: 20180123
  139. PANTOPRAZOLE SODIUM [Concomitant]
     Active Substance: PANTOPRAZOLE SODIUM
     Indication: Product used for unknown indication
     Route: 048
     Dates: start: 20170722, end: 20180327
  140. PANTOPRAZOLE SODIUM [Concomitant]
     Active Substance: PANTOPRAZOLE SODIUM
     Indication: Gastrointestinal disorder
     Route: 048
     Dates: start: 20200506, end: 20200519
  141. PANTOPRAZOLE SODIUM [Concomitant]
     Active Substance: PANTOPRAZOLE SODIUM
     Dosage: 40 MG, QD
     Route: 048
     Dates: start: 20170721, end: 20180327
  142. PANTOPRAZOLE SODIUM [Concomitant]
     Active Substance: PANTOPRAZOLE SODIUM
     Route: 048
     Dates: start: 20210317, end: 20210607
  143. PANTOPRAZOLE SODIUM [Concomitant]
     Active Substance: PANTOPRAZOLE SODIUM
     Route: 048
     Dates: start: 20210608, end: 20210610
  144. PANTOPRAZOLE SODIUM [Concomitant]
     Active Substance: PANTOPRAZOLE SODIUM
     Route: 048
     Dates: start: 20210618, end: 20210623
  145. Novalgin [Concomitant]
     Indication: Product used for unknown indication
     Route: 065
     Dates: start: 20170329, end: 20180807
  146. Novalgin [Concomitant]
     Route: 048
     Dates: start: 20210608, end: 20210615
  147. Novalgin [Concomitant]
     Route: 048
     Dates: start: 20210618, end: 20210618
  148. LOVENOX [Concomitant]
     Active Substance: ENOXAPARIN SODIUM
     Indication: Product used for unknown indication
     Route: 065
     Dates: start: 20170224, end: 20171130
  149. LOVENOX [Concomitant]
     Active Substance: ENOXAPARIN SODIUM
     Dosage: 40 MG, QD
     Route: 065
     Dates: start: 20170224, end: 20171130
  150. EMEND [Concomitant]
     Active Substance: APREPITANT
     Indication: Product used for unknown indication
     Route: 065
     Dates: start: 20200428, end: 20200430
  151. DEXAMETHASONE [Concomitant]
     Active Substance: DEXAMETHASONE
     Indication: Brain oedema
     Route: 065
     Dates: start: 20171004, end: 20171006
  152. DEXAMETHASONE [Concomitant]
     Active Substance: DEXAMETHASONE
     Indication: Product used for unknown indication
     Route: 065
     Dates: start: 20171007, end: 20171008
  153. DEXAMETHASONE [Concomitant]
     Active Substance: DEXAMETHASONE
     Indication: Product used for unknown indication
     Route: 065
     Dates: start: 20200422, end: 20200505
  154. DEXAMETHASONE [Concomitant]
     Active Substance: DEXAMETHASONE
     Route: 065
     Dates: start: 20200609, end: 20200609
  155. DEXAMETHASONE [Concomitant]
     Active Substance: DEXAMETHASONE
     Route: 065
     Dates: start: 20210614, end: 20210623
  156. Oleovit [Concomitant]
     Indication: Product used for unknown indication
     Route: 048
     Dates: start: 20170329, end: 20210615
  157. Oleovit [Concomitant]
     Dosage: 30 DROP, ONCE EVERY 1 WK,1/12 MILLILITRE
     Route: 048
     Dates: start: 20170329, end: 20210615
  158. LEVOFLOXACIN [Concomitant]
     Active Substance: LEVOFLOXACIN
     Indication: Product used for unknown indication
     Route: 065
     Dates: start: 20200506, end: 20200512
  159. LEVOFLOXACIN [Concomitant]
     Active Substance: LEVOFLOXACIN
     Route: 065
  160. FENTANYL [Concomitant]
     Active Substance: FENTANYL
     Indication: Product used for unknown indication
     Route: 062
     Dates: start: 20200515
  161. FENTANYL [Concomitant]
     Active Substance: FENTANYL
     Route: 062
  162. EUTHYROX [Concomitant]
     Active Substance: LEVOTHYROXINE SODIUM
     Indication: Product used for unknown indication
     Route: 065
     Dates: start: 20170303
  163. EUTHYROX [Concomitant]
     Active Substance: LEVOTHYROXINE SODIUM
     Route: 065
     Dates: start: 20170303, end: 20210615
  164. EUTHYROX [Concomitant]
     Active Substance: LEVOTHYROXINE SODIUM
     Dosage: ONGOING = NOT CHECKED
     Route: 048
     Dates: start: 20170303, end: 20210615
  165. Leukichtan [Concomitant]
     Indication: Product used for unknown indication
     Route: 065
     Dates: start: 20200430, end: 20200515
  166. Leukichtan [Concomitant]
     Indication: Product used for unknown indication
     Route: 065
     Dates: start: 20200430, end: 20200515
  167. Leukichtan [Concomitant]
     Route: 065
     Dates: start: 20200430, end: 20200515
  168. Kalioral [Concomitant]
     Indication: Product used for unknown indication
     Route: 048
     Dates: start: 20200427, end: 20200428
  169. Kalioral [Concomitant]
     Indication: Product used for unknown indication
     Route: 065
     Dates: start: 20200608, end: 20200609
  170. Scottopect [Concomitant]
     Indication: Cough
     Route: 065
     Dates: start: 20210611, end: 20210613
  171. Scottopect [Concomitant]
     Route: 065
     Dates: start: 20210611, end: 20210613
  172. Scottopect [Concomitant]
     Route: 065
     Dates: start: 20210611, end: 20210613
  173. POLYETHYLENE GLYCOL 3350\POTASSIUM CHLORIDE\SODIUM BICARBONATE\SODIUM [Concomitant]
     Active Substance: POLYETHYLENE GLYCOL 3350\POTASSIUM CHLORIDE\SODIUM BICARBONATE\SODIUM CHLORIDE
     Indication: Product used for unknown indication
     Route: 065
     Dates: start: 20210608, end: 20210616
  174. POLYETHYLENE GLYCOL 3350\POTASSIUM CHLORIDE\SODIUM BICARBONATE\SODIUM [Concomitant]
     Active Substance: POLYETHYLENE GLYCOL 3350\POTASSIUM CHLORIDE\SODIUM BICARBONATE\SODIUM CHLORIDE
     Indication: Product used for unknown indication
     Route: 065
     Dates: start: 20210608, end: 20210616
  175. POLYETHYLENE GLYCOL 3350\POTASSIUM CHLORIDE\SODIUM BICARBONATE\SODIUM [Concomitant]
     Active Substance: POLYETHYLENE GLYCOL 3350\POTASSIUM CHLORIDE\SODIUM BICARBONATE\SODIUM CHLORIDE
     Route: 065
     Dates: start: 20210608, end: 20210616
  176. POLYETHYLENE GLYCOL 3350\POTASSIUM CHLORIDE\SODIUM BICARBONATE\SODIUM [Concomitant]
     Active Substance: POLYETHYLENE GLYCOL 3350\POTASSIUM CHLORIDE\SODIUM BICARBONATE\SODIUM CHLORIDE
     Route: 048
     Dates: start: 20170709, end: 20170709
  177. LACTULOSE [Concomitant]
     Active Substance: LACTULOSE
     Indication: Product used for unknown indication
     Route: 065
  178. LACTULOSE [Concomitant]
     Active Substance: LACTULOSE
     Route: 065
  179. LACTULOSE [Concomitant]
     Active Substance: LACTULOSE
     Route: 065
  180. LACTULOSE [Concomitant]
     Active Substance: LACTULOSE
     Route: 065
  181. HYDROMORPHONE HYDROCHLORIDE [Concomitant]
     Active Substance: HYDROMORPHONE HYDROCHLORIDE
     Indication: Product used for unknown indication
     Route: 065
     Dates: start: 20210611, end: 20210615
  182. HYDROMORPHONE HYDROCHLORIDE [Concomitant]
     Active Substance: HYDROMORPHONE HYDROCHLORIDE
     Route: 065
     Dates: start: 20210611, end: 20210615
  183. ONDANSETRON [Concomitant]
     Active Substance: ONDANSETRON
     Indication: Gastrointestinal disorder
     Route: 065
     Dates: start: 20210608, end: 20210610
  184. ONDANSETRON [Concomitant]
     Active Substance: ONDANSETRON
     Route: 065
     Dates: start: 20210608, end: 20210610
  185. ONDANSETRON [Concomitant]
     Active Substance: ONDANSETRON
     Route: 065
     Dates: start: 20210608, end: 20210610
  186. DRONABINOL [Concomitant]
     Active Substance: DRONABINOL
     Indication: Product used for unknown indication
     Route: 065
     Dates: start: 20210608, end: 20210612
  187. DRONABINOL [Concomitant]
     Active Substance: DRONABINOL
     Indication: Gastrointestinal disorder
     Route: 065
     Dates: start: 20210608, end: 20210612
  188. VITAMIN C [Concomitant]
     Active Substance: ASCORBIC ACID
     Indication: Gastrointestinal disorder
     Route: 065
     Dates: start: 20210611, end: 20210614
  189. ZIEXTENZO [Concomitant]
     Active Substance: PEGFILGRASTIM-BMEZ
     Indication: Product used for unknown indication
     Route: 065
     Dates: start: 20210610, end: 20210610
  190. Ponveridol [Concomitant]
     Indication: Gastrointestinal disorder
     Route: 065
     Dates: start: 20210618, end: 20210623
  191. Ponveridol [Concomitant]
     Route: 065
     Dates: start: 20210618, end: 20210623
  192. Ponveridol [Concomitant]
     Route: 065
     Dates: start: 20210618, end: 20210623
  193. Paracodin [Concomitant]
     Indication: Cough
     Route: 065
     Dates: start: 20210428, end: 20210615
  194. Paracodin [Concomitant]
     Route: 065
     Dates: start: 20210608, end: 20210610
  195. Paracodin [Concomitant]
     Route: 065
     Dates: start: 20170708, end: 20170709
  196. Paracodin [Concomitant]
     Route: 065
     Dates: start: 20210428, end: 20210615
  197. DROPERIDOL [Concomitant]
     Active Substance: DROPERIDOL
     Indication: Gastrointestinal disorder
     Route: 065
     Dates: start: 20210612, end: 20210617
  198. DROPERIDOL [Concomitant]
     Active Substance: DROPERIDOL
     Route: 065
     Dates: start: 20210612, end: 20210617
  199. DROPERIDOL [Concomitant]
     Active Substance: DROPERIDOL
     Route: 065
     Dates: start: 20210612, end: 20210617
  200. MORPHINE [Concomitant]
     Active Substance: MORPHINE
     Indication: Dyspnoea
     Route: 065
     Dates: start: 20210521, end: 20210616
  201. MORPHINE [Concomitant]
     Active Substance: MORPHINE
     Indication: Dyspnoea
     Route: 065
     Dates: start: 20210616, end: 20210623
  202. MORPHINE [Concomitant]
     Active Substance: MORPHINE
     Route: 065
     Dates: start: 20210616, end: 20210623
  203. MORPHINE [Concomitant]
     Active Substance: MORPHINE
     Route: 065
     Dates: start: 20210521, end: 20210616
  204. ALPRAZOLAM [Concomitant]
     Active Substance: ALPRAZOLAM
     Indication: Restlessness
     Route: 065
     Dates: start: 20210613, end: 20210615
  205. ALPRAZOLAM [Concomitant]
     Active Substance: ALPRAZOLAM
     Route: 065
     Dates: start: 20210613, end: 20210615
  206. ALPRAZOLAM [Concomitant]
     Active Substance: ALPRAZOLAM
     Route: 065
  207. BUTYLSCOPOLAMINE BROMIDE [Concomitant]
     Active Substance: BUTYLSCOPOLAMINE BROMIDE
     Indication: Gastrointestinal disorder
     Route: 065
     Dates: start: 20210618, end: 20210618
  208. BUTYLSCOPOLAMINE BROMIDE [Concomitant]
     Active Substance: BUTYLSCOPOLAMINE BROMIDE
     Route: 065
     Dates: start: 20210618, end: 20210618
  209. BUTYLSCOPOLAMINE BROMIDE [Concomitant]
     Active Substance: BUTYLSCOPOLAMINE BROMIDE
     Route: 065
     Dates: start: 20210618, end: 20210618
  210. LORAZEPAM [Concomitant]
     Active Substance: LORAZEPAM
     Indication: Restlessness
     Route: 065
     Dates: start: 20210618, end: 20210623
  211. LORAZEPAM [Concomitant]
     Active Substance: LORAZEPAM
     Route: 065
     Dates: start: 20210618, end: 20210623
  212. Temesta [Concomitant]
     Indication: Restlessness
     Route: 065
     Dates: start: 20210611, end: 20210621
  213. Temesta [Concomitant]
     Indication: Product used for unknown indication
     Route: 065
     Dates: start: 20210618, end: 20210623
  214. BETAMETHASONE DIPROPIONATE [Concomitant]
     Active Substance: BETAMETHASONE DIPROPIONATE
     Indication: Eczema
     Route: 001
     Dates: start: 20191122, end: 20191215
  215. BETAMETHASONE DIPROPIONATE [Concomitant]
     Active Substance: BETAMETHASONE DIPROPIONATE
     Indication: Eczema
  216. PANTOPRAZOLE [Concomitant]
     Active Substance: PANTOPRAZOLE
     Indication: Gastrointestinal disorder
     Route: 065
     Dates: start: 20210317, end: 20210623
  217. PANTOPRAZOLE [Concomitant]
     Active Substance: PANTOPRAZOLE
     Route: 065
     Dates: start: 20210618, end: 20210623
  218. PANTOPRAZOLE [Concomitant]
     Active Substance: PANTOPRAZOLE
     Route: 065
     Dates: start: 20210317, end: 20210607
  219. PANTOPRAZOLE [Concomitant]
     Active Substance: PANTOPRAZOLE
     Route: 065
     Dates: start: 20210618, end: 20210623
  220. PANTOPRAZOLE [Concomitant]
     Active Substance: PANTOPRAZOLE
     Route: 065
     Dates: start: 20210608, end: 20210610
  221. PANTOPRAZOLE [Concomitant]
     Active Substance: PANTOPRAZOLE
     Route: 065
     Dates: start: 20210608, end: 20210610
  222. PANTOPRAZOLE [Concomitant]
     Active Substance: PANTOPRAZOLE
     Route: 065
     Dates: start: 20210317, end: 20210607
  223. PANTOPRAZOLE [Concomitant]
     Active Substance: PANTOPRAZOLE
     Route: 065
     Dates: start: 20210618, end: 20210623
  224. CARBOXYMETHYLCELLULOSE SODIUM [Concomitant]
     Active Substance: CARBOXYMETHYLCELLULOSE SODIUM
     Indication: Product used for unknown indication
     Route: 065
  225. CARBOXYMETHYLCELLULOSE SODIUM [Concomitant]
     Active Substance: CARBOXYMETHYLCELLULOSE SODIUM
     Route: 065
     Dates: start: 20210105, end: 20210413
  226. AMOXICILLIN [Concomitant]
     Active Substance: AMOXICILLIN
     Indication: Product used for unknown indication
     Route: 065
  227. Elomel [Concomitant]
     Indication: Product used for unknown indication
     Route: 065
  228. Elomel [Concomitant]
     Route: 065
  229. Elomel [Concomitant]
     Route: 065
  230. Elomel [Concomitant]
     Route: 065
  231. SALINE [Concomitant]
     Active Substance: SODIUM CHLORIDE
     Indication: Product used for unknown indication
     Route: 065
  232. SALINE [Concomitant]
     Active Substance: SODIUM CHLORIDE
     Route: 065
  233. SALINE [Concomitant]
     Active Substance: SODIUM CHLORIDE
     Route: 065
  234. Metogastron [Concomitant]
     Indication: Product used for unknown indication
     Route: 065
     Dates: start: 20200506
  235. MARINOL [Concomitant]
     Active Substance: DRONABINOL
     Indication: Gastrointestinal disorder
     Route: 065
     Dates: start: 20210608, end: 20210612
  236. TUCATINIB [Concomitant]
     Active Substance: TUCATINIB
     Indication: Breast cancer metastatic
     Dosage: 300 MG, BID
     Route: 048
     Dates: start: 20201230, end: 20210210
  237. Dexagenta [Concomitant]
     Indication: Brain oedema
     Route: 065
     Dates: start: 20171004, end: 20171006
  238. Dexagenta [Concomitant]
     Route: 065
     Dates: start: 20171007, end: 20171008
  239. Morapid [Concomitant]
     Indication: Dyspnoea
     Route: 065
     Dates: start: 20210616, end: 20210623
  240. Morapid [Concomitant]
     Route: 065
     Dates: start: 20210521, end: 20210616
  241. AMPHO-MORONAL [Concomitant]
     Active Substance: AMPHOTERICIN B
     Indication: Product used for unknown indication
     Route: 065
  242. AMPHO-MORONAL [Concomitant]
     Active Substance: AMPHOTERICIN B
     Route: 065
  243. AMPHO-MORONAL [Concomitant]
     Active Substance: AMPHOTERICIN B
     Route: 065
  244. Healonid [Concomitant]
     Indication: Product used for unknown indication
     Route: 065
  245. ONDANSETRON HYDROCHLORIDE [Concomitant]
     Active Substance: ONDANSETRON HYDROCHLORIDE
     Indication: Gastrointestinal disorder
     Route: 048
     Dates: start: 20210611, end: 20210616
  246. ONDANSETRON HYDROCHLORIDE [Concomitant]
     Active Substance: ONDANSETRON HYDROCHLORIDE
     Route: 048
     Dates: start: 20200506
  247. ONDANSETRON HYDROCHLORIDE [Concomitant]
     Active Substance: ONDANSETRON HYDROCHLORIDE
     Route: 048
     Dates: start: 20170329, end: 20170809
  248. AMOXICILLIN\CLAVULANATE POTASSIUM [Concomitant]
     Active Substance: AMOXICILLIN\CLAVULANATE POTASSIUM
     Indication: Product used for unknown indication
     Dosage: 1 G
     Route: 065
     Dates: start: 20170711, end: 20170713
  249. AMOXICILLIN\CLAVULANATE POTASSIUM [Concomitant]
     Active Substance: AMOXICILLIN\CLAVULANATE POTASSIUM
     Route: 065
     Dates: start: 20200604, end: 20200605
  250. FILGRASTIM [Concomitant]
     Active Substance: FILGRASTIM
     Indication: Product used for unknown indication
     Route: 058
     Dates: start: 20170704, end: 20170708
  251. FILGRASTIM [Concomitant]
     Active Substance: FILGRASTIM
     Indication: Product used for unknown indication
     Route: 065
     Dates: start: 20200701
  252. LIDOCAINE [Concomitant]
     Active Substance: LIDOCAINE
     Indication: Product used for unknown indication
     Route: 065
     Dates: start: 20200610, end: 20200610
  253. Cal c vita [Concomitant]
     Indication: Product used for unknown indication
     Route: 065
     Dates: start: 20170203, end: 20210612
  254. Calcium genericon [Concomitant]
     Indication: Product used for unknown indication
     Route: 065
     Dates: start: 20170203
  255. POTASSIUM CHLORIDE [Concomitant]
     Active Substance: POTASSIUM CHLORIDE
     Indication: Product used for unknown indication
     Route: 065
  256. LYRICA [Concomitant]
     Active Substance: PREGABALIN
     Indication: Product used for unknown indication
     Dosage: 25 MG, QD
     Route: 065
     Dates: start: 20170428, end: 20180123
  257. LYRICA [Concomitant]
     Active Substance: PREGABALIN
     Route: 065
     Dates: start: 20190821, end: 20210616
  258. AUGMENTIN [Concomitant]
     Active Substance: AMOXICILLIN\CLAVULANATE POTASSIUM
     Indication: Product used for unknown indication
     Route: 065
     Dates: start: 20170710, end: 20170710
  259. AUGMENTIN [Concomitant]
     Active Substance: AMOXICILLIN\CLAVULANATE POTASSIUM
     Indication: Product used for unknown indication
  260. SODIUM CACODYLATE [Concomitant]
     Active Substance: SODIUM CACODYLATE
     Indication: Dyspnoea
     Route: 065
     Dates: start: 20210616, end: 20210623
  261. SODIUM CACODYLATE [Concomitant]
     Active Substance: SODIUM CACODYLATE
     Indication: Dyspnoea
     Route: 065
     Dates: start: 20210521, end: 20210616
  262. SODIUM CACODYLATE [Concomitant]
     Active Substance: SODIUM CACODYLATE
     Indication: Product used for unknown indication
  263. SODIUM CACODYLATE [Concomitant]
     Active Substance: SODIUM CACODYLATE
     Indication: Dyspnoea
  264. CEFEPIME [Concomitant]
     Active Substance: CEFEPIME HYDROCHLORIDE
     Indication: Product used for unknown indication
     Route: 065
  265. CEFEPIME [Concomitant]
     Active Substance: CEFEPIME HYDROCHLORIDE
     Indication: Product used for unknown indication
     Route: 065
  266. CEFEPIME [Concomitant]
     Active Substance: CEFEPIME HYDROCHLORIDE
     Route: 065
  267. HALSET [Concomitant]
     Indication: Cough
     Route: 065
     Dates: start: 20210611, end: 20210615
  268. Actimaris [Concomitant]
     Indication: Product used for unknown indication
     Route: 065
     Dates: start: 20200108, end: 20200128
  269. CETYLPYRIDINIUM CHLORIDE [Concomitant]
     Active Substance: CETYLPYRIDINIUM CHLORIDE
     Indication: Cough
     Route: 065
     Dates: start: 20210611, end: 20210615
  270. DROPERIDOL [Concomitant]
     Active Substance: DROPERIDOL
     Indication: Gastrointestinal disorder
     Route: 065
     Dates: start: 20210618, end: 20210623
  271. POTASSIUM CHLORIDE [Concomitant]
     Active Substance: POTASSIUM CHLORIDE
     Indication: Product used for unknown indication
     Route: 065
  272. POTASSIUM CHLORIDE [Concomitant]
     Active Substance: POTASSIUM CHLORIDE
     Route: 065
  273. DROPERIDOL [Concomitant]
     Active Substance: DROPERIDOL
     Indication: Gastrointestinal disorder
     Route: 065
     Dates: start: 20210612, end: 20210617

REACTIONS (29)
  - Pseudomonal sepsis [Recovered/Resolved]
  - Streptococcal sepsis [Recovered/Resolved]
  - Sepsis [Recovered/Resolved]
  - Brain oedema [Not Recovered/Not Resolved]
  - Vascular device infection [Recovered/Resolved]
  - Vascular device infection [Recovered/Resolved]
  - Metastases to central nervous system [Not Recovered/Not Resolved]
  - Metastases to lymph nodes [Not Recovered/Not Resolved]
  - Metastases to central nervous system [Not Recovered/Not Resolved]
  - Fatigue [Not Recovered/Not Resolved]
  - C-reactive protein increased [Not Recovered/Not Resolved]
  - Restlessness [Unknown]
  - Nausea [Recovered/Resolved]
  - Vomiting [Recovered/Resolved]
  - Intentional product use issue [Unknown]
  - Varicose vein [Not Recovered/Not Resolved]
  - Back pain [Recovered/Resolved]
  - Pleural effusion [Recovered/Resolved]
  - C-reactive protein increased [Not Recovered/Not Resolved]
  - Skin fissures [Recovered/Resolved]
  - Paronychia [Recovered/Resolved]
  - Eczema [Not Recovered/Not Resolved]
  - Candida infection [Recovered/Resolved]
  - Restlessness [Not Recovered/Not Resolved]
  - Nasal mucosal disorder [Recovered/Resolved]
  - Nail bed inflammation [Not Recovered/Not Resolved]
  - Intentional product use issue [Unknown]
  - Intentional product use issue [Unknown]
  - Off label use [Unknown]

NARRATIVE: CASE EVENT DATE: 20170921
